FAERS Safety Report 21450450 (Version 1)
Quarter: 2022Q4

REPORT INFORMATION
  Report Type: Spontaneous
  Country: US (occurrence: None)
  Receive Date: 20221012
  Receipt Date: 20221012
  Transmission Date: 20230113
  Serious: Yes (Hospitalization, Disabling)
  Sender: FDA-Public Use
  Company Number: None

PATIENT
  Age: 65 Year
  Sex: Male

DRUGS (1)
  1. CARVEDILOL [Suspect]
     Active Substance: CARVEDILOL
     Dates: start: 20220915

REACTIONS (5)
  - Loss of consciousness [None]
  - Foot fracture [None]
  - Multiple fractures [None]
  - Blood pressure abnormal [None]
  - Diabetes mellitus [None]

NARRATIVE: CASE EVENT DATE: 20220928
